FAERS Safety Report 14202443 (Version 2)
Quarter: 2017Q4

REPORT INFORMATION
  Report Type: Spontaneous
  Country: JP (occurrence: JP)
  Receive Date: 20171117
  Receipt Date: 20171124
  Transmission Date: 20180321
  Serious: Yes (Hospitalization, Other)
  Sender: FDA-Public Use
  Company Number: PHJP2017JP033295

PATIENT
  Age: 72 Year
  Sex: Female

DRUGS (7)
  1. HYALONSAN [Concomitant]
     Indication: PRODUCT USED FOR UNKNOWN INDICATION
     Dosage: UNK
     Route: 065
     Dates: start: 201702
  2. FLUMETHOLON [Concomitant]
     Active Substance: FLUOROMETHOLONE
     Indication: PRODUCT USED FOR UNKNOWN INDICATION
     Dosage: UNK
     Route: 065
     Dates: start: 201702
  3. GATIFLO [Concomitant]
     Active Substance: GATIFLOXACIN
     Indication: ULCERATIVE KERATITIS
     Dosage: 1/1H, UNK
     Route: 065
     Dates: start: 20170217
  4. PATANOL [Suspect]
     Active Substance: OLOPATADINE HYDROCHLORIDE
     Indication: ULCERATIVE KERATITIS
     Dosage: UNK
     Route: 047
     Dates: start: 201702
  5. BETAMETHASONE. [Concomitant]
     Active Substance: BETAMETHASONE
     Indication: ULCERATIVE KERATITIS
     Dosage: UNK
     Route: 065
  6. PREDONINE [Suspect]
     Active Substance: PREDNISOLONE
     Indication: PRODUCT USED FOR UNKNOWN INDICATION
     Dosage: UNK
     Route: 065
     Dates: start: 201702, end: 20170216
  7. BESTRON [Concomitant]
     Active Substance: CEFMENOXIME HYDROCHLORIDE
     Indication: ULCERATIVE KERATITIS
     Dosage: (1/1H)
     Route: 065
     Dates: start: 20170217

REACTIONS (4)
  - Ulcerative keratitis [Unknown]
  - Corneal perforation [Unknown]
  - Eye disorder [Unknown]
  - Corneal thinning [Unknown]

NARRATIVE: CASE EVENT DATE: 20170216
